FAERS Safety Report 15849320 (Version 1)
Quarter: 2019Q1

REPORT INFORMATION
  Report Type: Report from Study
  Country: GB (occurrence: GB)
  Receive Date: 20190121
  Receipt Date: 20190121
  Transmission Date: 20190417
  Serious: Yes (Hospitalization)
  Sender: FDA-Public Use
  Company Number: GB-JNJFOC-20190116927

PATIENT
  Age: 31 Year
  Sex: Female

DRUGS (2)
  1. STELARA [Suspect]
     Active Substance: USTEKINUMAB
     Indication: PRODUCT USED FOR UNKNOWN INDICATION
     Route: 058
     Dates: start: 2014
  2. CODEINE [Concomitant]
     Active Substance: CODEINE
     Route: 065

REACTIONS (11)
  - Injection site infection [Unknown]
  - Lower respiratory tract infection [Unknown]
  - Ear infection [Unknown]
  - Amnesia [Unknown]
  - Myalgia [Unknown]
  - Tonsillitis [Unknown]
  - Dizziness [Unknown]
  - Abdominal discomfort [Unknown]
  - Product dose omission [Unknown]
  - Abdominal pain upper [Unknown]
  - Headache [Unknown]

NARRATIVE: CASE EVENT DATE: 201808
